FAERS Safety Report 6282720-X (Version None)
Quarter: 2009Q3

REPORT INFORMATION
  Report Type: 
  Country: None (occurrence: None)
  Receive Date: 20090724
  Receipt Date: 20090711
  Transmission Date: 20100115
  Serious: Yes (Other)
  Sender: FDA-Public Use
  Company Number: US-ELI_LILLY_AND_COMPANY-US200907002465

PATIENT
  Age: 33 Year
  Sex: Male

DRUGS (5)
  1. ZYPREXA [Suspect]
     Indication: BIPOLAR DISORDER
     Dosage: 10 MG, DAILY (1/D)
     Dates: start: 20030101
  2. ZYPREXA [Suspect]
     Dosage: 15 MG, DAILY (1/D)
  3. PROZAC [Suspect]
     Dosage: 10 MG, UNK
  4. STRATTERA [Suspect]
     Dosage: 60 MG, UNK
  5. LISINOPRIL [Concomitant]

REACTIONS (2)
  - BLOOD GLUCOSE INCREASED [None]
  - WEIGHT INCREASED [None]
